FAERS Safety Report 8609878-9 (Version None)
Quarter: 2012Q3

REPORT INFORMATION
  Report Type: 
  Country: None (occurrence: None)
  Receive Date: 20120821
  Receipt Date: 20120813
  Transmission Date: 20120928
  Serious: Yes (Other)
  Sender: FDA-Public Use
  Company Number: CA-ROCHE-1101724

PATIENT
  Sex: Female
  Weight: 72.64 kg

DRUGS (4)
  1. ARAVA [Concomitant]
  2. FOLIC ACID [Concomitant]
  3. ACTEMRA [Suspect]
     Indication: RHEUMATOID ARTHRITIS
     Route: 042
     Dates: start: 20110615
  4. PERINDOPRIL ERBUMINE [Concomitant]

REACTIONS (2)
  - OSTEOARTHRITIS [None]
  - PAIN IN EXTREMITY [None]
